FAERS Safety Report 19244474 (Version 2)
Quarter: 2021Q2

REPORT INFORMATION
  Report Type: Spontaneous
  Country: US (occurrence: US)
  Receive Date: 20210511
  Receipt Date: 20210526
  Transmission Date: 20210717
  Serious: No
  Sender: FDA-Public Use
  Company Number: US-GLAXOSMITHKLINE-USCH2021AMR026413

PATIENT
  Age: 65 Year
  Sex: Male

DRUGS (2)
  1. GENERAL ANESTHESIA [Suspect]
     Active Substance: UNSPECIFIED INGREDIENT
     Indication: SURGERY
     Dosage: UNK
     Dates: start: 2018, end: 2018
  2. IBUPROFEN. [Suspect]
     Active Substance: IBUPROFEN
     Indication: SURGERY
     Dosage: 200 MG, QD
     Route: 048
     Dates: start: 2018, end: 2018

REACTIONS (5)
  - Dyspnoea [Unknown]
  - Anaesthetic complication [Unknown]
  - Lip swelling [Unknown]
  - Swollen tongue [Unknown]
  - Incorrect dosage administered [Unknown]
